FAERS Safety Report 16353583 (Version 2)
Quarter: 2019Q3

REPORT INFORMATION
  Report Type: Spontaneous
  Country: US (occurrence: US)
  Receive Date: 20190524
  Receipt Date: 20190826
  Transmission Date: 20191004
  Serious: Yes (Other)
  Sender: FDA-Public Use
  Company Number: US-CATALYST PHARMACEUTICALS, INC-2019CAT00147

PATIENT
  Age: 82 Year
  Sex: Male
  Weight: 83.45 kg

DRUGS (3)
  1. COSOPT [Concomitant]
     Active Substance: DORZOLAMIDE HYDROCHLORIDE\TIMOLOL MALEATE
  2. MESTINON [Concomitant]
     Active Substance: PYRIDOSTIGMINE BROMIDE
  3. FIRDAPSE [Suspect]
     Active Substance: AMIFAMPRIDINE
     Indication: MYASTHENIC SYNDROME
     Dosage: 15 MG, 5X/DAY
     Route: 048
     Dates: start: 20181213

REACTIONS (23)
  - Aphasia [Recovered/Resolved]
  - Hypertension [Unknown]
  - Musculoskeletal stiffness [Not Recovered/Not Resolved]
  - Inappropriate schedule of product administration [Recovered/Resolved]
  - Diarrhoea [Recovering/Resolving]
  - Muscular weakness [Unknown]
  - Back pain [Unknown]
  - Muscle spasms [Unknown]
  - Heart rate increased [Unknown]
  - Pain [Not Recovered/Not Resolved]
  - Muscle rigidity [Recovered/Resolved]
  - Balance disorder [Not Recovered/Not Resolved]
  - Dyspnoea [Not Recovered/Not Resolved]
  - Myasthenic syndrome [Unknown]
  - Gait inability [Recovered/Resolved]
  - Seizure [Recovered/Resolved]
  - Heart rate irregular [Unknown]
  - Dehydration [Unknown]
  - Dysstasia [Not Recovered/Not Resolved]
  - Asthenia [Not Recovered/Not Resolved]
  - Headache [Not Recovered/Not Resolved]
  - Dysarthria [Recovered/Resolved]
  - Dizziness [Not Recovered/Not Resolved]

NARRATIVE: CASE EVENT DATE: 201812
